FAERS Safety Report 7586143-2 (Version None)
Quarter: 2011Q3

REPORT INFORMATION
  Report Type: 
  Country: None (occurrence: None)
  Receive Date: 20110701
  Receipt Date: 20110630
  Transmission Date: 20111222
  Serious: Yes (Hospitalization)
  Sender: FDA-Public Use
  Company Number: DE-TEVA-288497GER

PATIENT
  Age: 70 Year
  Sex: Male
  Weight: 70 kg

DRUGS (2)
  1. METHOTREXATE [Suspect]
     Indication: INFLAMMATION
     Dosage: 2.8571 MILLIGRAM;
     Route: 058
     Dates: start: 20110401, end: 20110501
  2. LEFLUNOMIDE [Suspect]
     Indication: INFLAMMATION
     Dosage: 10 MILLIGRAM;
     Route: 048
     Dates: start: 20110401, end: 20110401

REACTIONS (1)
  - GALLBLADDER CANCER [None]
